FAERS Safety Report 24329983 (Version 2)
Quarter: 2025Q1

REPORT INFORMATION
  Report Type: Spontaneous
  Country: US (occurrence: US)
  Receive Date: 20240917
  Receipt Date: 20250123
  Transmission Date: 20250409
  Serious: No
  Sender: NOVARTIS
  Company Number: US-002147023-NVSC2024US184993

PATIENT
  Sex: Male
  Weight: 83 kg

DRUGS (1)
  1. SCEMBLIX [Suspect]
     Active Substance: ASCIMINIB HYDROCHLORIDE
     Indication: Chronic myeloid leukaemia
     Dosage: 80 MG, QD
     Route: 048

REACTIONS (3)
  - Flatulence [Recovered/Resolved]
  - Oesophagitis [Recovering/Resolving]
  - Gastrointestinal disorder [Recovering/Resolving]
